FAERS Safety Report 4697886-2 (Version None)
Quarter: 2005Q2

REPORT INFORMATION
  Report Type: 
  Country: None (occurrence: None)
  Receive Date: 20050621
  Receipt Date: 20050608
  Transmission Date: 20051028
  Serious: Yes (Other)
  Sender: FDA-Public Use
  Company Number: GXKR2005JP01189

PATIENT
  Age: 59 Year
  Sex: Female

DRUGS (3)
  1. RIMACTANE [Suspect]
     Indication: PULMONARY TUBERCULOSIS
     Dosage: ORAL
     Route: 048
     Dates: start: 20000501, end: 20010224
  2. ISONIAZID [Suspect]
     Indication: PULMONARY TUBERCULOSIS
     Dosage: ORAL
     Route: 048
     Dates: start: 20000501, end: 20010224
  3. ESANBUTOL (ETHAMBUTOL) [Suspect]
     Indication: PULMONARY TUBERCULOSIS
     Dosage: ORAL
     Route: 048
     Dates: start: 20000501, end: 20010224

REACTIONS (1)
  - OPTIC NEUROPATHY [None]
